FAERS Safety Report 9163789 (Version 1)
Quarter: 2013Q1

REPORT INFORMATION
  Report Type: Report from Study
  Country: US (occurrence: US)
  Receive Date: 20130314
  Receipt Date: 20130314
  Transmission Date: 20140127
  Serious: Yes (Other)
  Sender: FDA-Public Use
  Company Number: US-US-EMD SERONO, INC.-7198672

PATIENT
  Sex: Female

DRUGS (2)
  1. REBIF [Suspect]
     Indication: PRODUCT USED FOR UNKNOWN INDICATION
     Route: 058
     Dates: start: 20120530
  2. IBUPROFEN [Concomitant]
     Indication: PREMEDICATION

REACTIONS (5)
  - Type 2 diabetes mellitus [Unknown]
  - Weight increased [Recovered/Resolved]
  - Depressed mood [Unknown]
  - Injection site erythema [Unknown]
  - Influenza like illness [Unknown]
